FAERS Safety Report 18747513 (Version 2)
Quarter: 2021Q1

REPORT INFORMATION
  Report Type: Report from Study
  Country: JP (occurrence: JP)
  Receive Date: 20210115
  Receipt Date: 20210210
  Transmission Date: 20210419
  Serious: No
  Sender: FDA-Public Use
  Company Number: JP-ALNYLAM PHARMACEUTICALS, INC.-ALN-2020-002123

PATIENT

DRUGS (1)
  1. ALN?TTR02 [Suspect]
     Active Substance: PATISIRAN SODIUM
     Indication: HEREDITARY NEUROPATHIC AMYLOIDOSIS
     Dosage: UNK
     Route: 041
     Dates: start: 20161011

REACTIONS (4)
  - Rib fracture [Recovered/Resolved]
  - Restless legs syndrome [Unknown]
  - N-terminal prohormone brain natriuretic peptide increased [Unknown]
  - Pleural effusion [Unknown]

NARRATIVE: CASE EVENT DATE: 20201225
